FAERS Safety Report 8122051-6 (Version None)
Quarter: 2012Q1

REPORT INFORMATION
  Report Type: 
  Country: None (occurrence: None)
  Receive Date: 20120208
  Receipt Date: 20120127
  Transmission Date: 20120608
  Serious: Yes (Hospitalization, Disabling)
  Sender: FDA-Public Use
  Company Number: US-BAYER-2011-038853

PATIENT
  Age: 19 Year
  Sex: Female
  Weight: 59.864 kg

DRUGS (2)
  1. YAZ [Suspect]
     Indication: PRODUCT USED FOR UNKNOWN INDICATION
     Dosage: UNK
     Route: 048
     Dates: start: 20090301, end: 20090401
  2. NSAID'S [Concomitant]
     Dosage: UNK UNK, PRN

REACTIONS (7)
  - CONVULSION [None]
  - MENTAL DISORDER [None]
  - TRANSVERSE SINUS THROMBOSIS [None]
  - PAIN [None]
  - ANHEDONIA [None]
  - CEREBRAL THROMBOSIS [None]
  - ANXIETY [None]
